FAERS Safety Report 7771586-4 (Version None)
Quarter: 2011Q3

REPORT INFORMATION
  Report Type: 
  Country: None (occurrence: None)
  Receive Date: 20110922
  Receipt Date: 20110110
  Transmission Date: 20111222
  Serious: No
  Sender: FDA-Public Use
  Company Number: US-ASTRAZENECA-2011SE01579

PATIENT
  Age: 54 Year
  Sex: Female
  Weight: 53.1 kg

DRUGS (3)
  1. SEROQUEL XR [Suspect]
     Indication: ANXIETY
     Route: 048
  2. XANAX [Concomitant]
     Indication: ANXIETY
  3. XANAX [Concomitant]
     Indication: SOMNOLENCE

REACTIONS (1)
  - HYPERVIGILANCE [None]
